FAERS Safety Report 9282625 (Version 2)
Quarter: 2013Q2

REPORT INFORMATION
  Report Type: Spontaneous
  Country: US (occurrence: None)
  Receive Date: 20101119
  Receipt Date: 20130419
  Transmission Date: 20140414
  Serious: Yes (Life-Threatening)
  Sender: FDA-Public Use
  Company Number: 54973 RSAE102510TG-003

PATIENT
  Age: 5 Month
  Sex: Female
  Weight: 6.35 kg

DRUGS (1)
  1. HYLAND^S TEETHING TABLETS [Suspect]
     Indication: TEETHING
     Dosage: 3 TABS EVERY 2 HRS

REACTIONS (6)
  - Screaming [None]
  - Eye movement disorder [None]
  - Cyanosis [None]
  - Pyrexia [None]
  - Cerebral disorder [None]
  - Hallucination [None]
